FAERS Safety Report 25299718 (Version 3)
Quarter: 2025Q3

REPORT INFORMATION
  Report Type: Report from Study
  Country: US (occurrence: US)
  Receive Date: 20250512
  Receipt Date: 20250703
  Transmission Date: 20251021
  Serious: Yes (Other)
  Sender: ABBVIE
  Company Number: US-ABBVIE-6274341

PATIENT
  Age: 56 Year
  Sex: Female

DRUGS (1)
  1. CREON [Suspect]
     Active Substance: PANCRELIPASE AMYLASE\PANCRELIPASE LIPASE\PANCRELIPASE PROTEASE
     Indication: Product used for unknown indication
     Route: 048
     Dates: start: 20250117

REACTIONS (6)
  - Chemotherapy [Unknown]
  - Rectal prolapse [Not Recovered/Not Resolved]
  - Diarrhoea [Not Recovered/Not Resolved]
  - Genital hypoaesthesia [Not Recovered/Not Resolved]
  - Anal hypoaesthesia [Not Recovered/Not Resolved]
  - Hernia [Not Recovered/Not Resolved]

NARRATIVE: CASE EVENT DATE: 20250601
